FAERS Safety Report 6525752-6 (Version None)
Quarter: 2010Q1

REPORT INFORMATION
  Report Type: 
  Country: None (occurrence: None)
  Receive Date: 20100104
  Receipt Date: 20091221
  Transmission Date: 20100710
  Serious: Yes (Death, Hospitalization)
  Sender: FDA-Public Use
  Company Number: FR-PFIZER INC-2009312958

PATIENT
  Sex: Male

DRUGS (13)
  1. ALDACTONE [Suspect]
     Dosage: 25 MG, 1X/DAY
     Route: 048
     Dates: start: 20080422, end: 20080514
  2. COVERSYL [Suspect]
     Dosage: 4 MG, 1X/DAY
     Route: 048
     Dates: end: 20080514
  3. ALLOPURINOL [Suspect]
     Dosage: 300 MG, 1X/DAY
     Route: 048
     Dates: end: 20080514
  4. KALEORID [Suspect]
     Dosage: 1000 MG, 1X/DAY
     Route: 048
     Dates: end: 20080514
  5. LASILIX [Suspect]
     Dosage: 250 MG, 2X/DAY
     Route: 048
     Dates: end: 20080514
  6. SPIRIVA [Suspect]
     Dosage: 18 UG, 2X/DAY
     Route: 055
     Dates: end: 20080514
  7. PULMICORT [Suspect]
     Dosage: 1 DF, 1X/DAY
     Route: 055
     Dates: end: 20080514
  8. TAHOR [Concomitant]
     Dosage: 40 MG, 1X/DAY
     Route: 048
  9. KREDEX [Concomitant]
     Dosage: 25 MG, UNK
     Route: 048
  10. INIPOMP [Concomitant]
     Dosage: 20 MG, 1X/DAY
     Route: 048
  11. LEVOTHYROXINE SODIUM [Concomitant]
     Dosage: 25 UG, 1X/DAY
     Route: 048
  12. PREVISCAN [Concomitant]
     Dosage: 0.75 DF, 2 DAYS OUT OF 3
  13. PREVISCAN [Concomitant]
     Dosage: 0.5 DF, 1 DAY OUT OF 3

REACTIONS (2)
  - HYPERKALAEMIA [None]
  - RENAL FAILURE [None]
